FAERS Safety Report 4367779-9 (Version None)
Quarter: 2004Q2

REPORT INFORMATION
  Report Type: 
  Country: None (occurrence: None)
  Receive Date: 20040601
  Receipt Date: 20040525
  Transmission Date: 20050107
  Serious: Yes (Other)
  Sender: FDA-Public Use
  Company Number: GB-MERCK-0405GBR00186

PATIENT
  Age: 63 Year
  Weight: 89 kg

DRUGS (2)
  1. ATORVASTATIN CALCIUM [Concomitant]
     Route: 065
     Dates: start: 19980101
  2. ZETIA [Suspect]
     Indication: HYPERCHOLESTEROLAEMIA
     Route: 048
     Dates: start: 20030818

REACTIONS (1)
  - PHOTOSENSITIVITY REACTION [None]
